FAERS Safety Report 11768228 (Version 1)
Quarter: 2015Q4

REPORT INFORMATION
  Report Type: Spontaneous
  Country: US (occurrence: US)
  Receive Date: 20151123
  Receipt Date: 20151123
  Transmission Date: 20160304
  Serious: No
  Sender: FDA-Public Use
  Company Number: US-TEVA-519984USA

PATIENT
  Sex: Female

DRUGS (1)
  1. CLOZAPINE. [Suspect]
     Active Substance: CLOZAPINE
     Indication: PRODUCT USED FOR UNKNOWN INDICATION
     Dosage: 2 TABLETS OF 100MG AND 4 TABLETS OF 25MG DAILY
     Dates: start: 201409

REACTIONS (3)
  - Neutrophil count decreased [Unknown]
  - Product substitution issue [Unknown]
  - Drug ineffective [Unknown]
